FAERS Safety Report 23788330 (Version 1)
Quarter: 2024Q2

REPORT INFORMATION
  Report Type: Report from Study
  Country: US (occurrence: US)
  Receive Date: 20240426
  Receipt Date: 20240426
  Transmission Date: 20240716
  Serious: Yes (Other)
  Sender: FDA-Public Use
  Company Number: US-TAKEDA-2021TUS000501

PATIENT
  Age: 77 Year
  Sex: Male

DRUGS (3)
  1. ANTIHEMOPHILIC FACTOR HUMAN [Suspect]
     Active Substance: ANTIHEMOPHILIC FACTOR HUMAN
     Indication: Product used for unknown indication
     Dosage: 2300 INTERNATIONAL UNIT
     Route: 042
  2. ANTIHEMOPHILIC FACTOR HUMAN [Suspect]
     Active Substance: ANTIHEMOPHILIC FACTOR HUMAN
     Dosage: 2193 INTERNATIONAL UNIT
     Route: 065
  3. ANTIHEMOPHILIC FACTOR HUMAN [Suspect]
     Active Substance: ANTIHEMOPHILIC FACTOR HUMAN
     Dosage: 4385 INTERNATIONAL UNIT
     Route: 065

REACTIONS (1)
  - Post procedural contusion [Unknown]

NARRATIVE: CASE EVENT DATE: 20240419
